FAERS Safety Report 17820890 (Version 1)
Quarter: 2020Q2

REPORT INFORMATION
  Report Type: Spontaneous
  Country: US (occurrence: US)
  Receive Date: 20200525
  Receipt Date: 20200525
  Transmission Date: 20200714
  Serious: Yes (Death)
  Sender: FDA-Public Use
  Company Number: US-PFIZER INC-2020202891

PATIENT
  Age: 42 Year
  Sex: Male

DRUGS (1)
  1. DAURISMO [Suspect]
     Active Substance: GLASDEGIB
     Indication: ACUTE LEUKAEMIA
     Dosage: 100 MG, 1X/DAY (QD)
     Route: 048

REACTIONS (1)
  - Death [Fatal]
